FAERS Safety Report 23458621 (Version 2)
Quarter: 2024Q2

REPORT INFORMATION
  Report Type: Spontaneous
  Country: US (occurrence: US)
  Receive Date: 20240130
  Receipt Date: 20240519
  Transmission Date: 20240716
  Serious: No
  Sender: FDA-Public Use
  Company Number: US-BAUSCHBL-2023BNL013861

PATIENT
  Age: 87 Year
  Sex: Female
  Weight: 56.69 kg

DRUGS (2)
  1. MIEBO [Suspect]
     Active Substance: PERFLUOROHEXYLOCTANE
     Indication: Dry eye
     Dosage: 1 DROP INTO EACH EYE FOUR TIMES A DAY
     Route: 047
     Dates: start: 202312
  2. LUMIGAN [Suspect]
     Active Substance: BIMATOPROST
     Indication: Product used for unknown indication
     Route: 065

REACTIONS (7)
  - Photophobia [Unknown]
  - Product packaging quantity issue [Unknown]
  - Product design issue [Unknown]
  - Product use complaint [Unknown]
  - Product lot number issue [Unknown]
  - Product dose omission in error [Unknown]
  - Product delivery mechanism issue [Unknown]
